FAERS Safety Report 15428272 (Version 1)
Quarter: 2018Q3

REPORT INFORMATION
  Report Type: Spontaneous
  Country: IN (occurrence: IN)
  Receive Date: 20180926
  Receipt Date: 20180926
  Transmission Date: 20181010
  Serious: Yes (Hospitalization, Other)
  Sender: FDA-Public Use
  Company Number: IN-ASTELLAS-2018US041591

PATIENT
  Age: 60 Year
  Sex: Male

DRUGS (4)
  1. OZURDEX [Suspect]
     Active Substance: DEXAMETHASONE
     Indication: DIABETIC RETINAL OEDEMA
  2. TACROLIMUS. [Suspect]
     Active Substance: TACROLIMUS
     Indication: RENAL TRANSPLANT
     Route: 048
  3. OZURDEX [Suspect]
     Active Substance: DEXAMETHASONE
     Indication: CATARACT SUBCAPSULAR
     Dosage: UNK, UNKNOWN FREQ.
     Route: 050
  4. AZATHIOPRINE. [Suspect]
     Active Substance: AZATHIOPRINE
     Indication: RENAL TRANSPLANT
     Route: 048

REACTIONS (3)
  - Retinal haemorrhage [Recovered/Resolved]
  - Necrotising retinitis [Recovered/Resolved]
  - Cytomegalovirus chorioretinitis [Recovered/Resolved]
